FAERS Safety Report 8997494 (Version 2)
Quarter: 2013Q1

REPORT INFORMATION
  Report Type: Report from Study
  Country: US (occurrence: US)
  Receive Date: 20130104
  Receipt Date: 20130131
  Transmission Date: 20140127
  Serious: Yes (Other)
  Sender: FDA-Public Use
  Company Number: US-ABBOTT-12P-163-1027822-00

PATIENT
  Age: 19 Year
  Sex: Female
  Weight: 52.21 kg

DRUGS (2)
  1. HUMIRA [Suspect]
     Indication: CROHN^S DISEASE
     Dates: start: 200906, end: 20100827
  2. HUMIRA [Suspect]
     Dates: start: 201301

REACTIONS (4)
  - Intestinal perforation [Recovered/Resolved]
  - Large intestine perforation [Unknown]
  - Anaemia [Unknown]
  - Crohn^s disease [Not Recovered/Not Resolved]
